FAERS Safety Report 21401578 (Version 3)
Quarter: 2022Q4

REPORT INFORMATION
  Report Type: Report from Study
  Country: US (occurrence: None)
  Receive Date: 20221003
  Receipt Date: 20221212
  Transmission Date: 20230112
  Serious: Yes (Hospitalization)
  Sender: FDA-Public Use
  Company Number: US-ROCHE-3190164

PATIENT
  Age: 60 Year
  Sex: Female
  Weight: 100 kg

DRUGS (23)
  1. ATEZOLIZUMAB [Suspect]
     Active Substance: ATEZOLIZUMAB
     Indication: Lung adenocarcinoma
     Route: 041
     Dates: start: 20220103
  2. BEVACIZUMAB [Suspect]
     Active Substance: BEVACIZUMAB
     Indication: Lung adenocarcinoma
     Route: 042
     Dates: start: 20220103
  3. CARBOPLATIN [Suspect]
     Active Substance: CARBOPLATIN
     Indication: Lung adenocarcinoma
     Route: 065
  4. PEMETREXED [Suspect]
     Active Substance: PEMETREXED
     Indication: Lung adenocarcinoma
     Route: 065
  5. ASCORBIC ACID [Concomitant]
     Active Substance: ASCORBIC ACID
     Dates: start: 2018
  6. CHOLECALCIFEROL [Concomitant]
     Active Substance: CHOLECALCIFEROL
  7. VITAMIN D3 [Concomitant]
     Active Substance: CHOLECALCIFEROL
     Dates: start: 2018
  8. CYANOCOBALAMIN [Concomitant]
     Active Substance: CYANOCOBALAMIN
     Dates: start: 2018
  9. DULOXETINE [Concomitant]
     Active Substance: DULOXETINE
     Dates: start: 2018
  10. MELATONIN [Concomitant]
     Active Substance: MELATONIN
     Dates: start: 2020
  11. MORPHINE [Concomitant]
     Active Substance: MORPHINE
     Dates: start: 202107
  12. NALOXONE [Concomitant]
     Active Substance: NALOXONE
     Dates: start: 202107
  13. OXYCODONE [Concomitant]
     Active Substance: OXYCODONE
     Dates: start: 202107
  14. POLYETHYLENE GLYCOL [Concomitant]
     Active Substance: POLYETHYLENE GLYCOL
     Dates: start: 202107
  15. SENNOSIDES [Concomitant]
     Active Substance: SENNOSIDES
     Dates: start: 202107
  16. ONDANSETRON [Concomitant]
     Active Substance: ONDANSETRON
     Dates: start: 20220119
  17. DEXAMETHASONE [Concomitant]
     Active Substance: DEXAMETHASONE
     Dosage: 12/30/2022
  18. OMEPRAZOLE [Concomitant]
     Active Substance: OMEPRAZOLE
     Dates: start: 20220311
  19. METOCLOPRAMIDE [Concomitant]
     Active Substance: METOCLOPRAMIDE
     Dates: start: 20220517
  20. FOLIC ACID [Concomitant]
     Active Substance: FOLIC ACID
     Dates: start: 20220218
  21. FLEXERIL [Concomitant]
     Active Substance: CYCLOBENZAPRINE HYDROCHLORIDE
     Dates: start: 20220803
  22. ASTEPRO [Concomitant]
     Active Substance: AZELASTINE HYDROCHLORIDE
     Dates: start: 20220823
  23. LACTULOSE [Concomitant]
     Active Substance: LACTULOSE
     Dates: start: 20220817

REACTIONS (2)
  - Pain [Unknown]
  - Flank pain [Unknown]

NARRATIVE: CASE EVENT DATE: 20220908
